FAERS Safety Report 23183336 (Version 1)
Quarter: 2023Q4

REPORT INFORMATION
  Report Type: Spontaneous
  Country: US (occurrence: US)
  Receive Date: 20231114
  Receipt Date: 20231114
  Transmission Date: 20240110
  Serious: No
  Sender: FDA-Public Use
  Company Number: US-OptiNose US, Inc-2023OPT000101

PATIENT

DRUGS (1)
  1. XHANCE [Suspect]
     Active Substance: FLUTICASONE PROPIONATE
     Indication: Anosmia
     Route: 045

REACTIONS (3)
  - Vocal cord paralysis [Not Recovered/Not Resolved]
  - Dysarthria [Not Recovered/Not Resolved]
  - Product use in unapproved indication [Unknown]
